FAERS Safety Report 12220750 (Version 2)
Quarter: 2016Q2

REPORT INFORMATION
  Report Type: Spontaneous
  Country: HU (occurrence: HU)
  Receive Date: 20160330
  Receipt Date: 20160511
  Transmission Date: 20160815
  Serious: Yes (Death, Other)
  Sender: FDA-Public Use
  Company Number: HU-TOLMAR, INC.-2016HU002960

PATIENT
  Sex: Male

DRUGS (1)
  1. ELIGARD [Suspect]
     Active Substance: LEUPROLIDE ACETATE
     Indication: PROSTATE CANCER
     Dosage: UNK
     Route: 065
     Dates: start: 20130606, end: 20151221

REACTIONS (2)
  - Chronic lymphocytic leukaemia [Fatal]
  - Anaemia [Fatal]

NARRATIVE: CASE EVENT DATE: 2013
